FAERS Safety Report 5009885-1 (Version None)
Quarter: 2006Q2

REPORT INFORMATION
  Report Type: 
  Country: None (occurrence: None)
  Receive Date: 20060524
  Receipt Date: 20060508
  Transmission Date: 20061013
  Serious: Yes (Other)
  Sender: FDA-Public Use
  Company Number: PHEH2006US06045

PATIENT
  Sex: Male

DRUGS (7)
  1. ZOMETA [Suspect]
     Indication: METASTASES TO BONE
     Dosage: 4 MG, MONTHLY
     Dates: start: 20030725, end: 20060401
  2. ESTRAMUSTINE [Concomitant]
     Dosage: UNK, UNK
     Dates: start: 20060201
  3. ZOLADEX [Concomitant]
     Dosage: 10.8 UNK, UNK
     Dates: start: 20060125
  4. FLUTAMIDE [Concomitant]
     Dosage: 250 UNK, TID
     Dates: start: 20050304, end: 20050701
  5. FINASTERIDE [Concomitant]
  6. KETOKONAZOL [Concomitant]
     Dates: start: 20060201
  7. HYDROCORTISONE [Concomitant]

REACTIONS (3)
  - OSTEONECROSIS [None]
  - PAIN IN JAW [None]
  - TOOTH EXTRACTION [None]
